FAERS Safety Report 24904518 (Version 1)
Quarter: 2025Q1

REPORT INFORMATION
  Report Type: Spontaneous
  Country: US (occurrence: US)
  Receive Date: 20250130
  Receipt Date: 20250130
  Transmission Date: 20250408
  Serious: Yes (Other)
  Sender: MYLAN
  Company Number: US-MYLANLABS-2025M1007340

PATIENT
  Age: 75 Year
  Sex: Male

DRUGS (12)
  1. ACITRETIN [Suspect]
     Active Substance: ACITRETIN
     Indication: Rash
     Dosage: 50 MILLIGRAM, QD (TITRATED TO 50 MG DAILY), TREATMENT WAS STOPPED INITIALLY
     Route: 048
  2. ACITRETIN [Suspect]
     Active Substance: ACITRETIN
     Indication: Keratoacanthoma
     Dosage: REINITIATED WITH 10 MILLIGRAM, QD (ON A MAINTENANCE DOSE)
     Route: 048
  3. TRIAMCINOLONE [Suspect]
     Active Substance: TRIAMCINOLONE
     Indication: Rash
     Route: 026
  4. TRIAMCINOLONE [Suspect]
     Active Substance: TRIAMCINOLONE
     Indication: Keratoacanthoma
  5. ERLOTINIB [Suspect]
     Active Substance: ERLOTINIB
     Indication: Keratoacanthoma
     Dosage: 150 MILLIGRAM, QD
     Route: 065
  6. ERLOTINIB [Suspect]
     Active Substance: ERLOTINIB
     Indication: Rash
  7. CEMIPLIMAB [Concomitant]
     Active Substance: CEMIPLIMAB
     Indication: Keratoacanthoma
     Route: 065
  8. CEMIPLIMAB [Concomitant]
     Active Substance: CEMIPLIMAB
     Indication: Rash
  9. FLUOROURACIL [Concomitant]
     Active Substance: FLUOROURACIL
     Indication: Keratoacanthoma
     Route: 061
  10. FLUOROURACIL [Concomitant]
     Active Substance: FLUOROURACIL
     Indication: Rash
  11. PREDNISONE [Concomitant]
     Active Substance: PREDNISONE
     Indication: Drug eruption
     Route: 065
  12. TRIAMCINOLONE [Concomitant]
     Active Substance: TRIAMCINOLONE
     Indication: Drug eruption
     Route: 065

REACTIONS (2)
  - Drug ineffective [Unknown]
  - Hepatic enzyme increased [Unknown]
